FAERS Safety Report 5345281-5 (Version None)
Quarter: 2007Q2

REPORT INFORMATION
  Report Type: 
  Country: None (occurrence: None)
  Receive Date: 20070531
  Receipt Date: 20070517
  Transmission Date: 20071010
  Serious: Yes (Hospitalization)
  Sender: FDA-Public Use
  Company Number: VNL_0499_2007

PATIENT
  Sex: Female

DRUGS (4)
  1. APOKYN [Suspect]
     Indication: PARKINSON'S DISEASE
     Dosage: SUBCUTANEOUS
     Route: 058
     Dates: start: 20070111
  2. SINEMET [Concomitant]
  3. MIRAPEX [Concomitant]
  4. RASAGILINE [Concomitant]

REACTIONS (6)
  - DIZZINESS [None]
  - DYSKINESIA [None]
  - FALL [None]
  - HEADACHE [None]
  - HYPERHIDROSIS [None]
  - LOWER LIMB FRACTURE [None]
